FAERS Safety Report 9860069 (Version 1)
Quarter: 2014Q1

REPORT INFORMATION
  Report Type: Spontaneous
  Country: FR (occurrence: FR)
  Receive Date: 20140131
  Receipt Date: 20140131
  Transmission Date: 20141002
  Serious: Yes (Life-Threatening, Hospitalization, Other)
  Sender: FDA-Public Use
  Company Number: FR-ASTRAZENECA-2014SE06970

PATIENT
  Age: 603 Month
  Sex: Male

DRUGS (7)
  1. INEXIUM [Suspect]
     Route: 048
     Dates: start: 201306, end: 20140108
  2. NOVORAPID [Suspect]
     Route: 058
  3. PREDNISONE [Suspect]
     Dosage: DAILY
     Route: 048
  4. PROGRAF [Suspect]
     Dosage: DAILY
     Route: 048
     Dates: start: 20130723, end: 20140115
  5. ROVALCYTE [Suspect]
     Dosage: DAILY
     Route: 048
     Dates: start: 20130828, end: 20140108
  6. CELLCEPT [Concomitant]
     Dosage: DAILY
     Route: 048
     Dates: start: 201306, end: 20130720
  7. NEORAL [Concomitant]
     Dosage: DAILY
     Route: 048
     Dates: start: 201306, end: 20130710

REACTIONS (10)
  - Shock haemorrhagic [Unknown]
  - Arterial injury [Unknown]
  - Acute respiratory distress syndrome [Unknown]
  - Anaemia [Not Recovered/Not Resolved]
  - Pneumonia aspiration [Unknown]
  - Cytomegalovirus colitis [Unknown]
  - Cytomegalovirus infection [Unknown]
  - Renal impairment [Unknown]
  - Haemolytic anaemia [Unknown]
  - Proctitis [Unknown]
